FAERS Safety Report 8758982 (Version 3)
Quarter: 2013Q4

REPORT INFORMATION
  Report Type: Spontaneous
  Country: US (occurrence: US)
  Receive Date: 20120829
  Receipt Date: 20131101
  Transmission Date: 20140711
  Serious: Yes (Other)
  Sender: FDA-Public Use
  Company Number: US-009507513-1208USA007756

PATIENT
  Age: 46 Year
  Sex: Male

DRUGS (2)
  1. PEG-INTRON [Suspect]
     Indication: HEPATITIS C
     Dosage: 160 MICROGRAM, QW
     Route: 058
     Dates: start: 20120504, end: 20120810
  2. REBETOL [Suspect]

REACTIONS (3)
  - White blood cell count decreased [Unknown]
  - Pyrexia [Unknown]
  - Adverse event [Unknown]
